FAERS Safety Report 24271868 (Version 2)
Quarter: 2024Q4

REPORT INFORMATION
  Report Type: Report from Study
  Country: US (occurrence: US)
  Receive Date: 20240902
  Receipt Date: 20241016
  Transmission Date: 20250114
  Serious: Yes (Hospitalization)
  Sender: BIOGEN
  Company Number: US-BIOGEN-2024BI01273021

PATIENT
  Sex: Female

DRUGS (5)
  1. VUMERITY [Suspect]
     Active Substance: DIROXIMEL FUMARATE
     Indication: Multiple sclerosis
     Dosage: TAKE 1 CAPSULE BY MOUTH TWICE DAILY FOR 7 DAYS, THEN INCREASE TO 2 CAPSULES TWICE DAILY THEREAFTER
     Route: 050
  2. VUMERITY [Suspect]
     Active Substance: DIROXIMEL FUMARATE
     Route: 050
     Dates: start: 20240628
  3. VUMERITY [Suspect]
     Active Substance: DIROXIMEL FUMARATE
     Route: 050
  4. VITAMIN D [Concomitant]
     Active Substance: VITAMIN D NOS
     Indication: Product used for unknown indication
     Route: 050
  5. ZYRTEC [Concomitant]
     Active Substance: CETIRIZINE HYDROCHLORIDE
     Indication: Product used for unknown indication
     Route: 050

REACTIONS (15)
  - Sensory disturbance [Unknown]
  - Product dose omission issue [Unknown]
  - Headache [Unknown]
  - Multiple allergies [Unknown]
  - Dry mouth [Unknown]
  - Multiple sclerosis [Unknown]
  - Thirst [Unknown]
  - Abdominal discomfort [Unknown]
  - Nasal congestion [Unknown]
  - Musculoskeletal disorder [Unknown]
  - Constipation [Recovered/Resolved]
  - Urine odour abnormal [Unknown]
  - Dysgeusia [Unknown]
  - Drug ineffective [Unknown]
  - Flushing [Unknown]
